FAERS Safety Report 6457415-X (Version None)
Quarter: 2009Q4

REPORT INFORMATION
  Report Type: 
  Country: None (occurrence: None)
  Receive Date: 20091125
  Receipt Date: 20091116
  Transmission Date: 20100525
  Serious: Yes (Hospitalization)
  Sender: FDA-Public Use
  Company Number: DE-JNJFOC-20091104295

PATIENT
  Age: 31 Year
  Sex: Male

DRUGS (7)
  1. RISPERDAL [Suspect]
     Route: 048
     Dates: start: 20090119, end: 20090129
  2. RISPERDAL [Suspect]
     Route: 048
     Dates: start: 20090119, end: 20090129
  3. RISPERDAL [Suspect]
     Route: 048
     Dates: start: 20090119, end: 20090129
  4. RISPERDAL [Suspect]
     Route: 048
     Dates: start: 20090119, end: 20090129
  5. RISPERDAL [Suspect]
     Indication: DRUG USE FOR UNKNOWN INDICATION
     Route: 048
     Dates: start: 20090119, end: 20090129
  6. DIAZEPAM [Suspect]
     Route: 048
     Dates: start: 20090119
  7. DIAZEPAM [Suspect]
     Indication: DRUG USE FOR UNKNOWN INDICATION
     Route: 048
     Dates: start: 20090119

REACTIONS (2)
  - ADVERSE EVENT [None]
  - URINARY RETENTION [None]
